FAERS Safety Report 10678238 (Version 51)
Quarter: 2019Q3

REPORT INFORMATION
  Report Type: Report from Study
  Country: CA (occurrence: CA)
  Receive Date: 20141229
  Receipt Date: 20190802
  Transmission Date: 20191004
  Serious: Yes (Hospitalization, Other)
  Sender: FDA-Public Use
  Company Number: PHHY2013CA045262

PATIENT
  Age: 55 Year
  Sex: Female

DRUGS (26)
  1. SANDOSTATIN [Suspect]
     Active Substance: OCTREOTIDE ACETATE
     Indication: INTESTINAL OBSTRUCTION
     Dosage: 100 UG, TID
     Route: 058
     Dates: start: 20130402, end: 2016
  2. SANDOSTATIN LAR DEPOT [Suspect]
     Active Substance: OCTREOTIDE ACETATE
     Indication: INTESTINAL OBSTRUCTION
     Dosage: 20 MG, QMO
     Route: 030
  3. FRAGMIN [Concomitant]
     Active Substance: DALTEPARIN SODIUM
     Indication: PRODUCT USED FOR UNKNOWN INDICATION
     Dosage: UNK UNK, QD
     Route: 058
  4. SANDOSTATIN [Suspect]
     Active Substance: OCTREOTIDE ACETATE
     Dosage: 150 MCG, BID
     Route: 058
     Dates: start: 201711, end: 2017
  5. SANDOSTATIN LAR DEPOT [Suspect]
     Active Substance: OCTREOTIDE ACETATE
     Indication: GASTROINTESTINAL CARCINOMA
     Dosage: 20 MG, QMO
     Route: 030
     Dates: start: 20130426
  6. SANDOSTATIN LAR DEPOT [Suspect]
     Active Substance: OCTREOTIDE ACETATE
     Dosage: 30 MG, QMO (ONCE A MONTH)
     Route: 030
     Dates: start: 20171212
  7. DECADRON [Concomitant]
     Active Substance: DEXAMETHASONE
     Indication: PRODUCT USED FOR UNKNOWN INDICATION
     Dosage: 6 MG (2MG AND 4MG), QD
     Route: 048
  8. MORPHINE [Concomitant]
     Active Substance: MORPHINE
     Indication: PRODUCT USED FOR UNKNOWN INDICATION
     Dosage: 62 MG, Q72H
     Route: 062
  9. FORMIN [Concomitant]
     Active Substance: METFORMIN HYDROCHLORIDE
     Indication: PRODUCT USED FOR UNKNOWN INDICATION
     Dosage: UNK UNK, QD
     Route: 058
  10. HUMALOG [Concomitant]
     Active Substance: INSULIN LISPRO
     Indication: DIABETES MELLITUS
     Dosage: 1 DF, QID
     Route: 065
  11. SANDOSTATIN [Suspect]
     Active Substance: OCTREOTIDE ACETATE
     Indication: GASTROINTESTINAL CARCINOMA
     Dosage: 150 UG, BID
     Route: 058
     Dates: start: 2016
  12. SANDOSTATIN LAR DEPOT [Suspect]
     Active Substance: OCTREOTIDE ACETATE
     Dosage: 20 MG, QMO
     Route: 030
  13. SANDOSTATIN LAR DEPOT [Suspect]
     Active Substance: OCTREOTIDE ACETATE
     Dosage: UNK
     Route: 030
     Dates: start: 20181209
  14. FENTANYL. [Concomitant]
     Active Substance: FENTANYL
     Dosage: 75 UG, UNK
     Route: 065
  15. INSULIN [Concomitant]
     Active Substance: INSULIN NOS
     Indication: DIABETES MELLITUS
     Route: 065
  16. SANDOSTATIN [Suspect]
     Active Substance: OCTREOTIDE ACETATE
     Dosage: 100 MCG, BID
     Route: 058
     Dates: start: 201812
  17. GRAVOL [Suspect]
     Active Substance: DIMENHYDRINATE
     Indication: PRODUCT USED FOR UNKNOWN INDICATION
     Dosage: UNK
     Route: 065
  18. RITALIN [Concomitant]
     Active Substance: METHYLPHENIDATE HYDROCHLORIDE
     Indication: PRODUCT USED FOR UNKNOWN INDICATION
     Dosage: 30 MG, BID (IN AM AND NOON)
     Route: 048
  19. SANDOSTATIN [Suspect]
     Active Substance: OCTREOTIDE ACETATE
     Dosage: 100 MCG, BID (FOR 1 WEEK)
     Route: 058
     Dates: start: 2017
  20. SANDOSTATIN [Suspect]
     Active Substance: OCTREOTIDE ACETATE
     Dosage: 100 MCG, QD (FOR 1 WEEK)
     Route: 058
  21. SANDOSTATIN [Suspect]
     Active Substance: OCTREOTIDE ACETATE
     Dosage: 100 MCG, QD (FOR 1 WEEK)
     Route: 058
  22. SANDOSTATIN LAR DEPOT [Suspect]
     Active Substance: OCTREOTIDE ACETATE
     Dosage: 30 MG, QMO
     Route: 030
  23. SANDOSTATIN LAR DEPOT [Suspect]
     Active Substance: OCTREOTIDE ACETATE
     Dosage: UNK
     Route: 030
     Dates: start: 20170223
  24. FENTANYL. [Concomitant]
     Active Substance: FENTANYL
     Indication: PRODUCT USED FOR UNKNOWN INDICATION
     Dosage: 62 UG, UNK
     Route: 065
  25. MELODOL [Concomitant]
     Indication: PRODUCT USED FOR UNKNOWN INDICATION
     Dosage: 2.5 MG, TID
     Route: 065
  26. HUMALIN [Concomitant]
     Active Substance: INSULIN NOS
     Indication: DIABETES MELLITUS
     Dosage: 1 DF, BID
     Route: 065

REACTIONS (54)
  - Sputum retention [Unknown]
  - Cough [Unknown]
  - Pneumothorax [Unknown]
  - Dyspnoea [Not Recovered/Not Resolved]
  - Renal impairment [Unknown]
  - Urinary tract infection [Recovered/Resolved]
  - Decreased immune responsiveness [Unknown]
  - Dizziness [Unknown]
  - Constipation [Not Recovered/Not Resolved]
  - Needle issue [Unknown]
  - Cough [Recovered/Resolved]
  - Blood pressure increased [Unknown]
  - Nasopharyngitis [Unknown]
  - Nasal discharge discolouration [Unknown]
  - Pain [Not Recovered/Not Resolved]
  - Pulmonary pain [Unknown]
  - Abdominal pain lower [Unknown]
  - Lung infection [Unknown]
  - Nasal congestion [Unknown]
  - Chromaturia [Unknown]
  - Hypersomnia [Unknown]
  - Fatigue [Unknown]
  - Rash [Unknown]
  - Headache [Unknown]
  - Pneumonia [Unknown]
  - Sputum discoloured [Unknown]
  - Urine odour abnormal [Unknown]
  - Rhinorrhoea [Unknown]
  - Product use in unapproved indication [Unknown]
  - Metastases to abdominal cavity [Unknown]
  - Vertigo [Unknown]
  - Hyperhidrosis [Unknown]
  - Wound [Unknown]
  - Pleural effusion [Unknown]
  - Intestinal obstruction [Unknown]
  - Intra-abdominal fluid collection [Unknown]
  - Abdominal mass [Unknown]
  - Nodule [Unknown]
  - Body temperature increased [Unknown]
  - Decreased appetite [Unknown]
  - Pneumonia [Recovered/Resolved]
  - Breath sounds abnormal [Unknown]
  - Abdominal pain [Unknown]
  - Hypoaesthesia [Recovering/Resolving]
  - Erythema [Unknown]
  - Candida infection [Unknown]
  - Drug hypersensitivity [Unknown]
  - Heart rate increased [Unknown]
  - Neck pain [Unknown]
  - Bronchial disorder [Unknown]
  - Back pain [Unknown]
  - Pulmonary embolism [Unknown]
  - Sleep disorder [Unknown]
  - Peripheral swelling [Recovering/Resolving]

NARRATIVE: CASE EVENT DATE: 20130402
